FAERS Safety Report 6908914-5 (Version None)
Quarter: 2010Q3

REPORT INFORMATION
  Report Type: 
  Country: None (occurrence: None)
  Receive Date: 20100805
  Receipt Date: 20100727
  Transmission Date: 20110219
  Serious: Yes (Hospitalization)
  Sender: FDA-Public Use
  Company Number: GXKR2010SE08450

PATIENT
  Sex: Female

DRUGS (14)
  1. CITALOPRAM HYDROBROMIDE [Suspect]
     Dosage: UNK
     Route: 048
     Dates: start: 20100101, end: 20100502
  2. AMILORIDE HCL AND HYDROCHLOROTHIAZIDE [Suspect]
     Indication: CARDIAC DISORDER
     Dosage: UNK
     Route: 048
     Dates: end: 20100502
  3. SYMBICORT [Concomitant]
  4. TIOTROPIUM BROMIDE [Concomitant]
  5. PAMOL [Concomitant]
     Route: 065
  6. BISOPROLOL [Concomitant]
     Route: 065
  7. FELODIPINE [Concomitant]
     Route: 065
  8. SIMVASTATIN [Concomitant]
     Route: 065
  9. ZOPICLONE [Concomitant]
     Route: 065
  10. NITROGLYCERIN [Suspect]
     Dosage: 0.4 MG/DOSE
     Route: 060
  11. POTASSIUM CHLORIDE [Concomitant]
     Route: 065
  12. ASPIRIN [Suspect]
     Route: 065
  13. PLAVIX [Concomitant]
     Route: 065
  14. PANTOPRAZOLE [Concomitant]
     Route: 065

REACTIONS (6)
  - CONFUSIONAL STATE [None]
  - DECREASED APPETITE [None]
  - FATIGUE [None]
  - FLUID INTAKE RESTRICTION [None]
  - INAPPROPRIATE ANTIDIURETIC HORMONE SECRETION [None]
  - NECK PAIN [None]
